FAERS Safety Report 8042289-6 (Version None)
Quarter: 2012Q1

REPORT INFORMATION
  Report Type: 
  Country: None (occurrence: None)
  Receive Date: 20120112
  Receipt Date: 20120110
  Transmission Date: 20120608
  Serious: Yes (Other)
  Sender: FDA-Public Use
  Company Number: US-ROCHE-794014

PATIENT
  Sex: Female
  Weight: 57.204 kg

DRUGS (5)
  1. ACCUTANE [Suspect]
     Indication: ACNE CYSTIC
     Route: 065
     Dates: start: 19960917, end: 19980701
  2. NAPROXEN (ALEVE) [Concomitant]
  3. DAYPRO [Concomitant]
     Dates: start: 11980101
  4. NAPROSYN [Concomitant]
  5. IBUPROFEN [Concomitant]

REACTIONS (3)
  - IRRITABLE BOWEL SYNDROME [None]
  - INFLAMMATORY BOWEL DISEASE [None]
  - DEPRESSION [None]
